FAERS Safety Report 23704950 (Version 1)
Quarter: 2024Q2

REPORT INFORMATION
  Report Type: Spontaneous
  Country: GB (occurrence: GB)
  Receive Date: 20240404
  Receipt Date: 20240404
  Transmission Date: 20240716
  Serious: Yes (Other)
  Sender: FDA-Public Use
  Company Number: None

PATIENT
  Age: 63 Year
  Sex: Female
  Weight: 59 kg

DRUGS (9)
  1. ATORVASTATIN [Suspect]
     Active Substance: ATORVASTATIN
     Indication: Ill-defined disorder
     Dosage: DURATION: 1 DAY
     Route: 065
     Dates: start: 20240326, end: 20240326
  2. ATORVASTATIN [Suspect]
     Active Substance: ATORVASTATIN
     Indication: Ill-defined disorder
     Dosage: TAKE ONE DAILY, DURATION: 60 DAYS
     Route: 065
     Dates: start: 20240126, end: 20240326
  3. ATORVASTATIN [Suspect]
     Active Substance: ATORVASTATIN
     Indication: Ill-defined disorder
     Route: 065
     Dates: start: 20240326
  4. VENTOLIN [Concomitant]
     Active Substance: ALBUTEROL SULFATE
     Indication: Ill-defined disorder
     Dosage: 2 PUFFS WHEN NEEDED UP TO FOUR TIMES DAILY
     Dates: start: 20231002
  5. BECLOMETHASONE\FORMOTEROL [Concomitant]
     Active Substance: BECLOMETHASONE\FORMOTEROL
     Indication: Ill-defined disorder
     Dosage: ONE TO TWO PUFFS TWICE DAILY
     Dates: start: 20231002
  6. LANSOPRAZOLE [Concomitant]
     Active Substance: LANSOPRAZOLE
     Indication: Ill-defined disorder
     Dosage: TAKE ONE ONCE DAILY
     Dates: start: 20231002
  7. POLYETHYLENE GLYCOL 3350\POTASSIUM CHLORIDE\SODIUM BICARBONATE\SODIUM [Concomitant]
     Active Substance: POLYETHYLENE GLYCOL 3350\POTASSIUM CHLORIDE\SODIUM BICARBONATE\SODIUM CHLORIDE
     Indication: Ill-defined disorder
     Dosage: USE AS DIRECTED
     Dates: start: 20231002
  8. BETAMETHASONE VALERATE [Concomitant]
     Active Substance: BETAMETHASONE VALERATE
     Indication: Ill-defined disorder
     Dosage: MODERATE POTENCY STEROID CREAM -  APPLY TWICE A..., DURATION: 28 DAYS
     Dates: start: 20240109, end: 20240206
  9. LEVOTHYROXINE [Concomitant]
     Active Substance: LEVOTHYROXINE\LEVOTHYROXINE SODIUM
     Indication: Ill-defined disorder
     Dosage: TAKE ONE EACH MORNING
     Dates: start: 20231002

REACTIONS (1)
  - Wheezing [Recovering/Resolving]

NARRATIVE: CASE EVENT DATE: 20240326
